FAERS Safety Report 18577078 (Version 2)
Quarter: 2021Q1

REPORT INFORMATION
  Report Type: Spontaneous
  Country: US (occurrence: US)
  Receive Date: 20201204
  Receipt Date: 20210101
  Transmission Date: 20210419
  Serious: Yes (Other)
  Sender: FDA-Public Use
  Company Number: US-ROCHE-2724642

PATIENT
  Sex: Male

DRUGS (4)
  1. NUTROPIN [Suspect]
     Active Substance: SOMATROPIN
  2. NUTROPIN [Suspect]
     Active Substance: SOMATROPIN
     Indication: HYPOPITUITARISM
     Dosage: STRENGTH 5 MG/2ML
     Route: 058
     Dates: start: 20200124
  3. NUTROPIN [Suspect]
     Active Substance: SOMATROPIN
     Indication: CHRONIC KIDNEY DISEASE
  4. NUTROPIN [Suspect]
     Active Substance: SOMATROPIN

REACTIONS (1)
  - Upper limb fracture [Unknown]
